FAERS Safety Report 10133677 (Version 1)
Quarter: 2014Q2

REPORT INFORMATION
  Report Type: Spontaneous
  Country: GB (occurrence: GB)
  Receive Date: 20140428
  Receipt Date: 20140428
  Transmission Date: 20141212
  Serious: Yes (Other)
  Sender: FDA-Public Use
  Company Number: GB-TEVA-478101ISR

PATIENT
  Age: 71 Year
  Sex: Female

DRUGS (3)
  1. WARFARIN [Suspect]
     Indication: DEEP VEIN THROMBOSIS
  2. ATENOLOL [Concomitant]
     Indication: BLOOD PRESSURE
  3. SIMVASTATIN [Concomitant]
     Indication: BLOOD CHOLESTEROL INCREASED

REACTIONS (2)
  - Petechiae [Not Recovered/Not Resolved]
  - Rash macular [Not Recovered/Not Resolved]
